FAERS Safety Report 18548041 (Version 1)
Quarter: 2020Q4

REPORT INFORMATION
  Report Type: Spontaneous
  Country: US (occurrence: US)
  Receive Date: 20201125
  Receipt Date: 20201125
  Transmission Date: 20210114
  Serious: Yes (Death, Hospitalization, Other)
  Sender: FDA-Public Use
  Company Number: US-009507513-2011USA013182

PATIENT
  Age: 55 Year
  Sex: Female
  Weight: 38.55 kg

DRUGS (1)
  1. KEYTRUDA [Suspect]
     Active Substance: PEMBROLIZUMAB
     Dosage: 200 MILLIGRAM
     Route: 042
     Dates: start: 20200221

REACTIONS (5)
  - Hypophagia [Unknown]
  - Pneumothorax [Unknown]
  - Death [Fatal]
  - Uterine cancer [Unknown]
  - Malnutrition [Unknown]

NARRATIVE: CASE EVENT DATE: 2020
